FAERS Safety Report 4289480-2 (Version None)
Quarter: 2004Q1

REPORT INFORMATION
  Report Type: 
  Country: None (occurrence: None)
  Receive Date: 20040206
  Receipt Date: 20040122
  Transmission Date: 20041129
  Serious: Yes (Other)
  Sender: FDA-Public Use
  Company Number: 2004-BP-00481BP

PATIENT
  Age: 69 Year
  Sex: Female

DRUGS (9)
  1. MICARDIS [Suspect]
     Indication: CEREBROVASCULAR ACCIDENT PROPHYLAXIS
     Dosage: PO
     Route: 048
     Dates: start: 20030701
  2. MICARDIS [Suspect]
     Indication: PROPHYLAXIS
     Dosage: PO
     Route: 048
     Dates: start: 20030701
  3. RAMIPRIL [Suspect]
     Indication: CEREBROVASCULAR ACCIDENT PROPHYLAXIS
     Dosage: PO
     Route: 048
     Dates: start: 20030701
  4. RAMIPRIL [Suspect]
     Indication: PROPHYLAXIS
     Dosage: PO
     Route: 048
     Dates: start: 20030701
  5. ASS [Concomitant]
  6. INSULIN [Concomitant]
  7. L-THYROXINE [Concomitant]
  8. FENOFIBRAT [Concomitant]
  9. PLIMEPOID [Concomitant]

REACTIONS (3)
  - FALL [None]
  - LOSS OF CONSCIOUSNESS [None]
  - SYNCOPE [None]
